APPROVED DRUG PRODUCT: LEVONORGESTREL AND ETHINYL ESTRADIOL
Active Ingredient: ETHINYL ESTRADIOL; LEVONORGESTREL
Strength: 0.02MG;0.1MG
Dosage Form/Route: TABLET;ORAL-28
Application: A202247 | Product #001
Applicant: XIROMED LLC
Approved: Dec 8, 2014 | RLD: No | RS: No | Type: DISCN